FAERS Safety Report 18432324 (Version 1)
Quarter: 2020Q4

REPORT INFORMATION
  Report Type: Spontaneous
  Country: RU (occurrence: RU)
  Receive Date: 20201027
  Receipt Date: 20201027
  Transmission Date: 20210114
  Serious: Yes (Other)
  Sender: FDA-Public Use
  Company Number: RU-JNJFOC-20201034248

PATIENT
  Age: 70 Year
  Sex: Male

DRUGS (1)
  1. XARELTO [Suspect]
     Active Substance: RIVAROXABAN
     Indication: PERIPHERAL ARTERIAL OCCLUSIVE DISEASE
     Dosage: 2.5 MG
     Route: 048
     Dates: start: 2019

REACTIONS (3)
  - Contraindicated product prescribed [Unknown]
  - Chronic kidney disease [Unknown]
  - Labelled drug-disease interaction medication error [Unknown]

NARRATIVE: CASE EVENT DATE: 20200918
